FAERS Safety Report 7622663-X (Version None)
Quarter: 2011Q3

REPORT INFORMATION
  Report Type: 
  Country: None (occurrence: None)
  Receive Date: 20110719
  Receipt Date: 20110719
  Transmission Date: 20111222
  Serious: Yes (Other)
  Sender: FDA-Public Use
  Company Number: None

PATIENT
  Age: 57 Year
  Sex: Female
  Weight: 56.8 kg

DRUGS (6)
  1. POTASSIUM CITRATE [Suspect]
     Indication: BLOOD POTASSIUM DECREASED
     Dosage: 99 MG POTASSIUM CITRATE 1 ORAL TABLET
     Route: 048
     Dates: start: 20110704
  2. POTASSIUM CITRATE [Suspect]
     Indication: MUSCLE SPASMS
     Dosage: 99 MG POTASSIUM CITRATE 1 ORAL TABLET
     Route: 048
     Dates: start: 20110704
  3. POTASSIUM CITRATE [Suspect]
     Indication: BLOOD POTASSIUM DECREASED
     Dosage: 99 MG POTASSIUM CITRATE 1 ORAL TABLET
     Route: 048
     Dates: start: 20110702
  4. POTASSIUM CITRATE [Suspect]
     Indication: MUSCLE SPASMS
     Dosage: 99 MG POTASSIUM CITRATE 1 ORAL TABLET
     Route: 048
     Dates: start: 20110702
  5. POTASSIUM CITRATE [Suspect]
     Indication: BLOOD POTASSIUM DECREASED
     Dosage: 99 MG POTASSIUM CITRATE 1 ORAL TABLET
     Route: 048
     Dates: start: 20110703
  6. POTASSIUM CITRATE [Suspect]
     Indication: MUSCLE SPASMS
     Dosage: 99 MG POTASSIUM CITRATE 1 ORAL TABLET
     Route: 048
     Dates: start: 20110703

REACTIONS (10)
  - HEADACHE [None]
  - MYALGIA [None]
  - BACK PAIN [None]
  - DIZZINESS [None]
  - LYMPHADENOPATHY [None]
  - OROPHARYNGEAL PAIN [None]
  - PAIN IN JAW [None]
  - ANXIETY [None]
  - INSOMNIA [None]
  - BRONCHIECTASIS [None]
